FAERS Safety Report 5054525-9 (Version None)
Quarter: 2006Q3

REPORT INFORMATION
  Report Type: 
  Country: None (occurrence: None)
  Receive Date: 20060714
  Receipt Date: 20060704
  Transmission Date: 20061208
  Serious: Yes (Life-Threatening, Hospitalization)
  Sender: FDA-Public Use
  Company Number: 2006083889

PATIENT
  Age: 51 Year
  Sex: Female
  Weight: 80 kg

DRUGS (1)
  1. SULFASALAZINE [Suspect]
     Indication: RHEUMATOID ARTHRITIS
     Dosage: 2 GRAM (1 GRAM, 2 IN 1 D)
     Dates: start: 20050430, end: 20050601

REACTIONS (4)
  - COMA [None]
  - DYSPNOEA [None]
  - PSEUDOLYMPHOMA [None]
  - RASH [None]
